FAERS Safety Report 25145042 (Version 3)
Quarter: 2025Q2

REPORT INFORMATION
  Report Type: Spontaneous
  Country: FR (occurrence: FR)
  Receive Date: 20250401
  Receipt Date: 20250522
  Transmission Date: 20250717
  Serious: Yes (Hospitalization)
  Sender: EMD SERONO INC
  Company Number: FR-Merck Healthcare KGaA-2025001314

PATIENT
  Age: 53 Year
  Sex: Female

DRUGS (2)
  1. BAVENCIO [Suspect]
     Active Substance: AVELUMAB
     Indication: Gestational trophoblastic tumour
     Dosage: APPROXIMATELY 9 TO 12 CYCLES
  2. METHOTREXATE [Suspect]
     Active Substance: METHOTREXATE
     Indication: Gestational trophoblastic tumour

REACTIONS (4)
  - Febrile neutropenia [Recovered/Resolved]
  - Anaemia [Recovered/Resolved]
  - Keratitis [Unknown]
  - Off label use [Unknown]

NARRATIVE: CASE EVENT DATE: 20250127
